FAERS Safety Report 10205235 (Version 1)
Quarter: 2014Q2

REPORT INFORMATION
  Report Type: Spontaneous
  Country: US (occurrence: US)
  Receive Date: 20140529
  Receipt Date: 20140529
  Transmission Date: 20141212
  Serious: Yes (Other)
  Sender: FDA-Public Use
  Company Number: US-LUNDBECK-DKLU1100353

PATIENT
  Sex: Male

DRUGS (8)
  1. SABRIL     (TABLET) [Suspect]
     Indication: EPILEPSY
     Dates: start: 20140425
  2. SABRIL     (TABLET) [Suspect]
     Indication: COMPLEX PARTIAL SEIZURES
  3. SABRIL     (TABLET) [Suspect]
  4. SABRIL     (TABLET) [Suspect]
  5. SABRIL     (TABLET) [Suspect]
  6. SABRIL     (TABLET) [Suspect]
  7. SABRIL     (TABLET) [Suspect]
     Dates: end: 20140506
  8. LAMICTAL [Concomitant]
     Indication: PRODUCT USED FOR UNKNOWN INDICATION

REACTIONS (1)
  - Convulsion [Unknown]
